FAERS Safety Report 5642860-2 (Version None)
Quarter: 2008Q1

REPORT INFORMATION
  Report Type: 
  Country: None (occurrence: None)
  Receive Date: 20080228
  Receipt Date: 20080214
  Transmission Date: 20080703
  Serious: Yes (Death, Hospitalization)
  Sender: FDA-Public Use
  Company Number: US-RANBAXY-2008RR-13135

PATIENT

DRUGS (11)
  1. LAMIVUDINE [Suspect]
     Indication: HIV INFECTION
  2. EFAVIRENZ [Suspect]
     Indication: HIV INFECTION
  3. TENOFOVIR DISOPROXIL FUMARATE [Suspect]
     Indication: HIV INFECTION
  4. COTRIM [Concomitant]
     Indication: PNEUMOCYSTIS JIROVECI PNEUMONIA
  5. PREDNISOLONE RPG 5MG COMPRIME EFFERVESCENT [Concomitant]
  6. METHYLPREDNISOLONE [Concomitant]
  7. DEXAMETHASONE TAB [Concomitant]
  8. DOXORUBICIN HCL [Concomitant]
     Indication: CHEMOTHERAPY
  9. BLEOMYCIN [Concomitant]
     Indication: CHEMOTHERAPY
  10. DACARBAZINE [Concomitant]
     Indication: CHEMOTHERAPY
  11. VINBLASTINE SULFATE [Concomitant]
     Indication: CHEMOTHERAPY

REACTIONS (1)
  - HISTIOCYTOSIS HAEMATOPHAGIC [None]
